FAERS Safety Report 5857808-5 (Version None)
Quarter: 2008Q3

REPORT INFORMATION
  Report Type: 
  Country: None (occurrence: None)
  Receive Date: 20080822
  Receipt Date: 20080813
  Transmission Date: 20090109
  Serious: Yes (Death)
  Sender: FDA-Public Use
  Company Number: GXKR2008IT07655

PATIENT
  Age: 81 Year

DRUGS (4)
  1. CARBOPLATIN [Suspect]
     Indication: OVARIAN CANCER RECURRENT
     Dosage: AUC 5-6 EVERY 3 WEEKS, INFUSION
  2. CORTICOSTEROIDS (NO INGREDIENTS/SUBSTANCES) [Concomitant]
  3. ANTIHISTAMINES (NO INGREDIENTS/SUBSTANCES) [Concomitant]
  4. H2-RECEPTOR ANTAGONISTS (NO INGREDIENTS/SUBSTANCES) [Concomitant]

REACTIONS (3)
  - CARDIAC ARREST [None]
  - CHEST PAIN [None]
  - HYPERSENSITIVITY [None]
